FAERS Safety Report 11992129 (Version 1)
Quarter: 2016Q1

REPORT INFORMATION
  Report Type: Spontaneous
  Country: US (occurrence: US)
  Receive Date: 20160203
  Receipt Date: 20160203
  Transmission Date: 20160526
  Serious: No
  Sender: FDA-Public Use
  Company Number: US-JNJFOC-20151217597

PATIENT
  Age: 5 Month
  Sex: Male
  Weight: 5.9 kg

DRUGS (2)
  1. INFANTS TYLENOL [Suspect]
     Active Substance: ACETAMINOPHEN
     Indication: PYREXIA
     Dosage: AS NEEDED
     Route: 048
     Dates: start: 20151215, end: 20151217
  2. INFANTS TYLENOL [Suspect]
     Active Substance: ACETAMINOPHEN
     Indication: NASOPHARYNGITIS
     Dosage: AS NEEDED
     Route: 048
     Dates: start: 20151215, end: 20151217

REACTIONS (1)
  - Expired product administered [Unknown]
